FAERS Safety Report 16899395 (Version 1)
Quarter: 2019Q4

REPORT INFORMATION
  Report Type: Other
  Country: CA (occurrence: CA)
  Receive Date: 20191009
  Receipt Date: 20191009
  Transmission Date: 20200122
  Serious: Yes (Hospitalization, Other)
  Sender: FDA-Public Use
  Company Number: CA-AA PHARMA INC.-2019AP022443

PATIENT
  Sex: Male

DRUGS (29)
  1. FERROUS FUMARATE [Concomitant]
     Active Substance: FERROUS FUMARATE
     Indication: PRODUCT USED FOR UNKNOWN INDICATION
     Dosage: UNK
     Route: 065
  2. VITAMIN B6 [Concomitant]
     Active Substance: PYRIDOXINE HYDROCHLORIDE
     Indication: PRODUCT USED FOR UNKNOWN INDICATION
     Dosage: UNK
     Route: 065
  3. KEFLEX [Suspect]
     Active Substance: CEPHALEXIN
     Indication: PRODUCT USED FOR UNKNOWN INDICATION
     Dosage: 500 MG, QID
     Route: 048
  4. AA-CLOZAPINE [Suspect]
     Active Substance: CLOZAPINE
     Indication: SCHIZOAFFECTIVE DISORDER
     Dosage: 12.5 MG, Q.H.S.
     Route: 065
     Dates: start: 20181212
  5. BISOPROLOL [Concomitant]
     Active Substance: BISOPROLOL
     Indication: PRODUCT USED FOR UNKNOWN INDICATION
     Dosage: 5 MG, Q.AM
     Route: 065
  6. AA-CLOZAPINE [Suspect]
     Active Substance: CLOZAPINE
     Dosage: 50 MG, Q.AM
     Route: 065
     Dates: start: 20181224, end: 20181226
  7. QUETIAPINE. [Concomitant]
     Active Substance: QUETIAPINE
     Dosage: 50 MG, BID
     Route: 065
  8. SUBOXONE [Concomitant]
     Active Substance: BUPRENORPHINE HYDROCHLORIDE\NALOXONE HYDROCHLORIDE
     Dosage: 16 MG, UNK, DAILY (UPTITRATED)
     Route: 060
  9. SENNA                              /00142201/ [Concomitant]
     Active Substance: SENNA LEAF
     Indication: PRODUCT USED FOR UNKNOWN INDICATION
     Dosage: UNK
     Route: 065
  10. AA-CLOZAPINE [Suspect]
     Active Substance: CLOZAPINE
     Dosage: 25 MG, Q.H.S.
     Route: 065
     Dates: start: 20181213, end: 20181214
  11. AA-CLOZAPINE [Suspect]
     Active Substance: CLOZAPINE
     Dosage: 50 MG, Q.H.S.
     Route: 065
     Dates: start: 20181217
  12. AA-CLOZAPINE [Suspect]
     Active Substance: CLOZAPINE
     Dosage: 250 MG, Q.H.S.
     Route: 065
     Dates: start: 20180816, end: 20190919
  13. BISOPROLOL [Concomitant]
     Active Substance: BISOPROLOL
     Dosage: 2.5 MG, UNK, DAILY
     Route: 065
  14. HYDROMORPHONE [Concomitant]
     Active Substance: HYDROMORPHONE
     Indication: PRODUCT USED FOR UNKNOWN INDICATION
     Dosage: UNK., 1-2 MG, EVERY FOUR HOURS AS NECESSARY
     Route: 058
  15. ACETAMINOPHEN. [Concomitant]
     Active Substance: ACETAMINOPHEN
     Indication: PRODUCT USED FOR UNKNOWN INDICATION
     Dosage: UNK
     Route: 065
  16. AA-CLOZAPINE [Suspect]
     Active Substance: CLOZAPINE
     Indication: SCHIZOPHRENIA
     Dosage: 12.5 MG, Q.H.S.
     Route: 065
     Dates: start: 20181211
  17. GABAPENTIN. [Concomitant]
     Active Substance: GABAPENTIN
     Dosage: 300 MG, BID
     Route: 065
  18. SUBOXONE [Concomitant]
     Active Substance: BUPRENORPHINE HYDROCHLORIDE\NALOXONE HYDROCHLORIDE
     Indication: PRODUCT USED FOR UNKNOWN INDICATION
     Dosage: STARTED AT LOWER DOSE
     Route: 060
  19. PYRIDOXINE [Concomitant]
     Active Substance: PYRIDOXINE
     Indication: PRODUCT USED FOR UNKNOWN INDICATION
     Dosage: UNK
     Route: 065
  20. HALOPERIDOL. [Concomitant]
     Active Substance: HALOPERIDOL
     Indication: PRODUCT USED FOR UNKNOWN INDICATION
     Dosage: UNK 5-10 MG, EVERY SIX HOURS AS NECESSARY
     Route: 030
  21. LORAZEPAM. [Concomitant]
     Active Substance: LORAZEPAM
     Indication: PRODUCT USED FOR UNKNOWN INDICATION
     Dosage: UNK, 1-2 MG DAILY
     Route: 042
  22. AA-CLOZAPINE [Suspect]
     Active Substance: CLOZAPINE
     Dosage: 37.5 MG, Q.H.S.
     Route: 065
     Dates: start: 20181215, end: 20181216
  23. FENTANYL. [Suspect]
     Active Substance: FENTANYL
     Indication: PRODUCT USED FOR UNKNOWN INDICATION
     Dosage: UNK
     Route: 065
  24. AA-CLOZAPINE [Suspect]
     Active Substance: CLOZAPINE
     Dosage: 62.5 MG, Q.H.S.
     Route: 065
     Dates: start: 20181218, end: 20181219
  25. GABAPENTIN. [Concomitant]
     Active Substance: GABAPENTIN
     Indication: PRODUCT USED FOR UNKNOWN INDICATION
     Dosage: 3 MG, BID, DAILY
     Route: 065
  26. QUETIAPINE. [Concomitant]
     Active Substance: QUETIAPINE
     Indication: PRODUCT USED FOR UNKNOWN INDICATION
     Dosage: 1 DF, BID, DAILY
     Route: 065
  27. PALIPERIDONE PALMITATE [Concomitant]
     Active Substance: PALIPERIDONE PALMITATE
     Indication: PRODUCT USED FOR UNKNOWN INDICATION
     Dosage: 150 MG, UNK, EVERY TWO WEEKS
     Route: 030
  28. ISONIAZIDE [Concomitant]
     Active Substance: ISONIAZID
     Indication: PRODUCT USED FOR UNKNOWN INDICATION
     Dosage: 900 MG, UNK
     Route: 065
  29. NICOTINE. [Concomitant]
     Active Substance: NICOTINE
     Indication: PRODUCT USED FOR UNKNOWN INDICATION
     Dosage: UNK
     Route: 065

REACTIONS (4)
  - Sedation [Unknown]
  - Neglect of personal appearance [Unknown]
  - Overdose [Unknown]
  - Neutropenia [Recovered/Resolved]
